FAERS Safety Report 12713421 (Version 3)
Quarter: 2016Q3

REPORT INFORMATION
  Report Type: Spontaneous
  Country: BE (occurrence: BE)
  Receive Date: 20160903
  Receipt Date: 20160927
  Transmission Date: 20161109
  Serious: Yes (Hospitalization, Other)
  Sender: FDA-Public Use
  Company Number: BE-ASTRAZENECA-2016SE92353

PATIENT
  Age: 23304 Day
  Sex: Male

DRUGS (1)
  1. BYDUREON [Suspect]
     Active Substance: EXENATIDE
     Route: 058
     Dates: start: 20160803, end: 20160805

REACTIONS (4)
  - Vasculitis necrotising [Recovering/Resolving]
  - Dermatitis allergic [Unknown]
  - Drug hypersensitivity [Recovering/Resolving]
  - Intentional product use issue [Unknown]

NARRATIVE: CASE EVENT DATE: 20160804
